FAERS Safety Report 13696936 (Version 1)
Quarter: 2017Q2

REPORT INFORMATION
  Report Type: Spontaneous
  Country: GB (occurrence: GB)
  Receive Date: 20170628
  Receipt Date: 20170628
  Transmission Date: 20170830
  Serious: Yes (Hospitalization)
  Sender: FDA-Public Use
  Company Number: GB-JNJFOC-20170613995

PATIENT
  Age: 44 Year
  Sex: Male
  Weight: 125.5 kg

DRUGS (2)
  1. IBUPROFEN. [Suspect]
     Active Substance: IBUPROFEN
     Route: 065
  2. IBUPROFEN. [Suspect]
     Active Substance: IBUPROFEN
     Indication: JOINT SWELLING
     Dosage: DOSE: 400.0 (UNIT UNSPECIFIED),  CUMULATIVE DOSE TO FIRST REACTION: 20400.0 (UNIT UNSPECIFIED).
     Route: 065
     Dates: start: 20170513, end: 20170518

REACTIONS (2)
  - Pancreatic carcinoma [Unknown]
  - Duodenal ulcer haemorrhage [Recovering/Resolving]

NARRATIVE: CASE EVENT DATE: 20170530
